FAERS Safety Report 16187276 (Version 2)
Quarter: 2019Q3

REPORT INFORMATION
  Report Type: Spontaneous
  Country: IN (occurrence: IN)
  Receive Date: 20190412
  Receipt Date: 20190920
  Transmission Date: 20191004
  Serious: Yes (Other)
  Sender: FDA-Public Use
  Company Number: IN-SUN PHARMACEUTICAL INDUSTRIES LTD-2019R1-204748

PATIENT
  Age: 55 Year
  Sex: Male

DRUGS (1)
  1. RISPERIDONE. [Suspect]
     Active Substance: RISPERIDONE
     Indication: SCHIZOPHRENIA
     Dosage: UNK
     Route: 065

REACTIONS (9)
  - Hallucination, auditory [Recovering/Resolving]
  - Mouth haemorrhage [Recovering/Resolving]
  - Decreased appetite [Unknown]
  - Constipation [Unknown]
  - Treatment noncompliance [Unknown]
  - Fatigue [Unknown]
  - Parosmia [Recovered/Resolved]
  - Insomnia [Unknown]
  - Irritability [Unknown]

NARRATIVE: CASE EVENT DATE: 201801
